FAERS Safety Report 7078769-X (Version None)
Quarter: 2010Q4

REPORT INFORMATION
  Report Type: 
  Country: None (occurrence: None)
  Receive Date: 20101102
  Receipt Date: 20101021
  Transmission Date: 20110411
  Serious: Yes (Congenital Anomaly, Other)
  Sender: FDA-Public Use
  Company Number: US-PFIZER INC-2010092584

PATIENT
  Sex: Female

DRUGS (1)
  1. ZOLOFT [Suspect]
     Dosage: UNK
     Route: 064

REACTIONS (16)
  - ATRIAL SEPTAL DEFECT [None]
  - BREECH PRESENTATION [None]
  - CAESAREAN SECTION [None]
  - CONGENITAL TRICUSPID VALVE ATRESIA [None]
  - DERMATITIS DIAPER [None]
  - DRUG EXPOSURE DURING PREGNANCY [None]
  - DYSPHONIA [None]
  - GASTROOESOPHAGEAL REFLUX DISEASE [None]
  - HEART DISEASE CONGENITAL [None]
  - HYDRONEPHROSIS [None]
  - MATERNAL DRUGS AFFECTING FOETUS [None]
  - PATENT DUCTUS ARTERIOSUS [None]
  - PULMONARY HYPERTENSION [None]
  - RESPIRATORY SYNCYTIAL VIRUS INFECTION [None]
  - UMBILICAL CORD ABNORMALITY [None]
  - VENTRICULAR SEPTAL DEFECT [None]
